FAERS Safety Report 9539125 (Version 1)
Quarter: 2013Q3

REPORT INFORMATION
  Report Type: Report from Study
  Country: KR (occurrence: KR)
  Receive Date: 20130920
  Receipt Date: 20130920
  Transmission Date: 20140515
  Serious: Yes (Death)
  Sender: FDA-Public Use
  Company Number: KR-AMGEN-KORCT2013066107

PATIENT
  Age: 83 Year
  Sex: Female

DRUGS (6)
  1. DARBEPOETIN ALFA [Suspect]
     Indication: ANAEMIA
     Dosage: 40 MUG, QWK
     Route: 058
     Dates: start: 20130712, end: 20130820
  2. ASPIRIN [Concomitant]
     Dosage: 100 MG, UNK
     Route: 048
     Dates: start: 20111219
  3. NICORANDIL [Concomitant]
     Dosage: 15 MG, UNK
     Route: 048
     Dates: start: 20111219
  4. FUROSEMIDE [Concomitant]
     Dosage: 80 MG, UNK
     Route: 048
     Dates: start: 20120414
  5. CALCIUM CARBONATE [Concomitant]
     Dosage: 3000 MG, UNK
     Route: 048
     Dates: start: 20130417
  6. ESOMEPRAZOLE STRONTIUM [Concomitant]
     Dosage: 20 MG, UNK
     Route: 048
     Dates: start: 20130116

REACTIONS (2)
  - Arrhythmia [Fatal]
  - Acute myocardial infarction [Fatal]
